FAERS Safety Report 8276118-2 (Version None)
Quarter: 2012Q2

REPORT INFORMATION
  Report Type: 
  Country: None (occurrence: None)
  Receive Date: 20120412
  Receipt Date: 20120329
  Transmission Date: 20120825
  Serious: Yes (Congenital Anomaly)
  Sender: FDA-Public Use
  Company Number: DE-MYLANLABS-2012S1005734

PATIENT
  Age: 0 Year
  Sex: Female
  Weight: 3.32 kg

DRUGS (2)
  1. FOLIC ACID [Concomitant]
     Dosage: 5 [MG/D ]
     Route: 064
     Dates: start: 20101213
  2. LAMOTRIGINE [Suspect]
     Dosage: 400 [MG/D ]/ FIRST TRIMESTER 350 MG/D
     Route: 064
     Dates: start: 20101213, end: 20110922

REACTIONS (6)
  - HIP DYSPLASIA [None]
  - ABDOMINAL PAIN [None]
  - HAEMANGIOMA [None]
  - EXPOSURE DURING BREAST FEEDING [None]
  - MATERNAL EXPOSURE DURING PREGNANCY [None]
  - THROMBOCYTOSIS [None]
